FAERS Safety Report 7461244-8 (Version None)
Quarter: 2011Q2

REPORT INFORMATION
  Report Type: 
  Country: None (occurrence: None)
  Receive Date: 20110506
  Receipt Date: 20110427
  Transmission Date: 20111010
  Serious: Yes (Hospitalization)
  Sender: FDA-Public Use
  Company Number: US-BIOGENIDEC-2010BI029999

PATIENT
  Age: 53 Year
  Sex: Female
  Weight: 63 kg

DRUGS (17)
  1. VITAMIN C [Concomitant]
     Indication: PROPHYLAXIS
  2. SEROQUEL [Concomitant]
  3. ACETAMINOPHEN [Concomitant]
  4. TYSABRI [Suspect]
     Indication: MULTIPLE SCLEROSIS
     Route: 042
     Dates: start: 20090409
  5. ATENOLOL [Concomitant]
     Indication: HYPERTENSION
     Route: 048
  6. LUMIGAN [Concomitant]
     Route: 047
  7. MYLANTA [Concomitant]
  8. RISPERDAL [Concomitant]
  9. DULCOLAX [Concomitant]
  10. METOPROLOL SUCCINATE [Concomitant]
  11. RESTASIS [Concomitant]
     Indication: KERATOCONJUNCTIVITIS SICCA
     Route: 047
     Dates: start: 20100601
  12. SIMVASTATIN [Concomitant]
     Indication: HYPERCHOLESTEROLAEMIA
     Route: 048
  13. LOVAZA [Concomitant]
     Indication: PROPHYLAXIS
  14. MILK OF MAGNESIA TAB [Concomitant]
  15. SYNTHROID [Concomitant]
     Indication: HYPOTHYROIDISM
     Dosage: DOSE UNIT:75
     Route: 048
  16. LIPITOR [Concomitant]
  17. ZOFRAN [Concomitant]

REACTIONS (1)
  - SUBARACHNOID HAEMORRHAGE [None]
